FAERS Safety Report 17894526 (Version 1)
Quarter: 2020Q2

REPORT INFORMATION
  Report Type: Spontaneous
  Country: CN (occurrence: CN)
  Receive Date: 20200615
  Receipt Date: 20200615
  Transmission Date: 20200714
  Serious: Yes (Other)
  Sender: FDA-Public Use
  Company Number: CN-ROCHE-2620932

PATIENT
  Age: 65 Year
  Sex: Female

DRUGS (19)
  1. LOBAPLATIN [Concomitant]
     Active Substance: LOBAPLATIN
     Indication: COLON CANCER
     Route: 065
     Dates: start: 20190509
  2. IRINOTECAN [Concomitant]
     Active Substance: IRINOTECAN
     Indication: COLON CANCER
     Route: 065
     Dates: end: 20180224
  3. OXALIPLATIN. [Suspect]
     Active Substance: OXALIPLATIN
     Indication: COLON CANCER
     Route: 065
     Dates: start: 20171101
  4. REGORAFENIB. [Concomitant]
     Active Substance: REGORAFENIB
     Indication: COLON CANCER
     Route: 048
  5. CAPECITABINE. [Concomitant]
     Active Substance: CAPECITABINE
     Indication: COLON CANCER
     Route: 048
     Dates: start: 20190509
  6. AVASTIN [Suspect]
     Active Substance: BEVACIZUMAB
     Route: 065
     Dates: start: 20180602, end: 20181121
  7. THALIDOMIDE [Concomitant]
     Active Substance: THALIDOMIDE
     Indication: COLON CANCER
     Dosage: ONCE EVERY EVENING
     Route: 048
     Dates: start: 2019, end: 2019
  8. RALTITREXED [Concomitant]
     Active Substance: RALTITREXED
     Indication: METASTASES TO ABDOMINAL WALL
     Route: 065
     Dates: start: 20180602, end: 20181121
  9. IRINOTECAN [Concomitant]
     Active Substance: IRINOTECAN
     Indication: METASTASES TO ABDOMINAL WALL
  10. CAPECITABINE. [Concomitant]
     Active Substance: CAPECITABINE
     Indication: METASTASES TO ABDOMINAL WALL
     Route: 048
  11. AVASTIN [Suspect]
     Active Substance: BEVACIZUMAB
     Indication: METASTASES TO ABDOMINAL WALL
     Route: 065
     Dates: end: 20180224
  12. LOBAPLATIN [Concomitant]
     Active Substance: LOBAPLATIN
     Indication: METASTASES TO ABDOMINAL WALL
  13. FLUOROURACIL. [Concomitant]
     Active Substance: FLUOROURACIL
     Indication: COLON CANCER
     Route: 065
     Dates: start: 20190509
  14. REGORAFENIB. [Concomitant]
     Active Substance: REGORAFENIB
     Indication: METASTASES TO ABDOMINAL WALL
  15. RALTITREXED [Concomitant]
     Active Substance: RALTITREXED
     Indication: COLON CANCER
     Route: 065
     Dates: start: 20171101, end: 20180224
  16. OXALIPLATIN. [Suspect]
     Active Substance: OXALIPLATIN
     Indication: METASTASES TO ABDOMINAL WALL
  17. AVASTIN [Suspect]
     Active Substance: BEVACIZUMAB
     Indication: COLON CANCER
     Route: 065
     Dates: start: 20171101
  18. FLUOROURACIL. [Concomitant]
     Active Substance: FLUOROURACIL
     Indication: METASTASES TO ABDOMINAL WALL
  19. THALIDOMIDE [Concomitant]
     Active Substance: THALIDOMIDE
     Indication: METASTASES TO ABDOMINAL WALL

REACTIONS (3)
  - Diarrhoea [Unknown]
  - Gastrointestinal disorder [Unknown]
  - Hypersensitivity [Unknown]

NARRATIVE: CASE EVENT DATE: 2019
